FAERS Safety Report 25867263 (Version 2)
Quarter: 2025Q4

REPORT INFORMATION
  Report Type: Other
  Country: GB (occurrence: GB)
  Receive Date: 20251001
  Receipt Date: 20251126
  Transmission Date: 20260118
  Serious: Yes (Other)
  Sender: IPCA
  Company Number: GB-JNJFOC-20250827451

PATIENT

DRUGS (9)
  1. FUROSEMIDE [Suspect]
     Active Substance: FUROSEMIDE
     Indication: Product used for unknown indication
     Dosage: 20 MILLIGRAM, QD (MORNING)
     Route: 065
  2. FENTANYL [Suspect]
     Active Substance: FENTANYL
     Indication: Pain
     Dosage: 150 MILLIGRAM
     Route: 062
     Dates: end: 20250531
  3. FENTANYL [Suspect]
     Active Substance: FENTANYL
     Dosage: 20 MG, SHORTEC CAPSULE TWICE DAILYWISH TO CHANGE 10 MG SHORTS + 15 MG SHORTEC TWICE DAILY
     Route: 062
     Dates: start: 20250531, end: 20250531
  4. BACLOFEN [Suspect]
     Active Substance: BACLOFEN
     Indication: Product used for unknown indication
     Dosage: 10 MILLIGRAM
     Route: 065
     Dates: start: 198209
  5. LORAZEPAM [Suspect]
     Active Substance: LORAZEPAM
     Indication: Product used for unknown indication
     Dosage: 1 MILLIGRAM, HS
     Route: 065
  6. VITAMIN B COMPLEX [Suspect]
     Active Substance: CYANOCOBALAMIN\DEXPANTHENOL\NIACINAMIDE\PYRIDOXINE HYDROCHLORIDE\RIBOFLAVIN 5^-PHOSPHATE SODIUM\THIA
     Indication: Product used for unknown indication
     Dosage: 1 DAILY
     Route: 065
  7. VITAMIN D2 [Suspect]
     Active Substance: ERGOCALCIFEROL
     Indication: Product used for unknown indication
     Dosage: 1 DAILY
     Route: 065
  8. ASCORBIC ACID\DEXTROSE [Suspect]
     Active Substance: ASCORBIC ACID\DEXTROSE
     Indication: Product used for unknown indication
     Dosage: 1 DAILY
     Route: 065
  9. VITAMIN E [Suspect]
     Active Substance: .ALPHA.-TOCOPHEROL
     Indication: Product used for unknown indication
     Dosage: 1 DAILY
     Route: 065

REACTIONS (3)
  - Surgery [Unknown]
  - Product availability issue [Unknown]
  - Product dose omission issue [Unknown]
